FAERS Safety Report 8051111-3 (Version None)
Quarter: 2012Q1

REPORT INFORMATION
  Report Type: 
  Country: None (occurrence: None)
  Receive Date: 20120117
  Receipt Date: 20120111
  Transmission Date: 20120608
  Serious: Yes (Other)
  Sender: FDA-Public Use
  Company Number: PHEH2012US000800

PATIENT
  Sex: Female

DRUGS (5)
  1. EXFORGE [Concomitant]
     Dosage: UNK UKN, UNK
  2. GILENYA [Suspect]
     Indication: RELAPSING-REMITTING MULTIPLE SCLEROSIS
     Dosage: 0.5 MG, QD
     Route: 048
     Dates: start: 20110913, end: 20111107
  3. BACLOFEN [Concomitant]
     Indication: MUSCLE SPASTICITY
     Dosage: 10 MG, BID
  4. VESICARE [Concomitant]
     Indication: BLADDER DISORDER
     Dosage: 5 MG, QD
  5. NEURONTIN [Concomitant]
     Indication: PAIN
     Dosage: 300 MG, TID

REACTIONS (3)
  - CATARACT [None]
  - MACULAR OEDEMA [None]
  - VISION BLURRED [None]
